FAERS Safety Report 9838208 (Version 2)
Quarter: 2014Q1

REPORT INFORMATION
  Report Type: Spontaneous
  Country: BR (occurrence: BR)
  Receive Date: 20140123
  Receipt Date: 20140127
  Transmission Date: 20141002
  Serious: Yes (Other)
  Sender: FDA-Public Use
  Company Number: BR-PFIZER INC-2014019288

PATIENT
  Age: 65 Year
  Sex: Male
  Weight: 60 kg

DRUGS (5)
  1. PRISTIQ [Suspect]
     Indication: DEPRESSION POSTOPERATIVE
     Dosage: 100 MG, DAILY
     Dates: start: 2013, end: 201401
  2. PRISTIQ [Suspect]
     Dosage: 100 MG, DAILY
     Dates: start: 20140118
  3. TRAMAL [Concomitant]
     Dosage: UNK
  4. LORAX (LORAZEPAM) [Concomitant]
     Dosage: UNK
  5. DRAMIN [Concomitant]
     Dosage: UNK

REACTIONS (3)
  - Lip and/or oral cavity cancer recurrent [Unknown]
  - Somnolence [Recovered/Resolved]
  - Headache [Not Recovered/Not Resolved]
